FAERS Safety Report 15033767 (Version 1)
Quarter: 2018Q2

REPORT INFORMATION
  Report Type: Spontaneous
  Country: US (occurrence: US)
  Receive Date: 20180619
  Receipt Date: 20180619
  Transmission Date: 20180711
  Serious: Yes (Other)
  Sender: FDA-Public Use
  Company Number: US-BEH-2018091679

PATIENT
  Age: 24 Year
  Sex: Female

DRUGS (2)
  1. HIZENTRA [Suspect]
     Active Substance: HUMAN IMMUNOGLOBULIN G
     Indication: CHRONIC INFLAMMATORY DEMYELINATING POLYRADICULONEUROPATHY
     Dosage: 32 G, QW
     Route: 058
     Dates: start: 201805
  2. HIZENTRA [Suspect]
     Active Substance: HUMAN IMMUNOGLOBULIN G
     Dosage: 32 G, TOT
     Route: 058
     Dates: start: 20180605, end: 20180605

REACTIONS (10)
  - Dysphagia [Recovered/Resolved]
  - Dysphagia [Recovering/Resolving]
  - Feeling hot [Recovering/Resolving]
  - Dizziness [Recovered/Resolved]
  - Feeling hot [Recovered/Resolved]
  - Pruritus [Recovered/Resolved]
  - Pruritus generalised [Unknown]
  - Pruritus [Recovering/Resolving]
  - Infusion site erythema [Unknown]
  - Dizziness [Recovering/Resolving]

NARRATIVE: CASE EVENT DATE: 20180605
